FAERS Safety Report 6650491-0 (Version None)
Quarter: 2010Q1

REPORT INFORMATION
  Report Type: 
  Country: None (occurrence: None)
  Receive Date: 20100325
  Receipt Date: 20100226
  Transmission Date: 20100710
  Serious: No
  Sender: FDA-Public Use
  Company Number: US-BIOGENIDEC-2010BI006922

PATIENT
  Age: 39 Year
  Sex: Female

DRUGS (2)
  1. AVONEX [Suspect]
     Indication: MULTIPLE SCLEROSIS
     Route: 030
     Dates: start: 19971201, end: 19990312
  2. AVONEX [Suspect]
     Route: 030
     Dates: start: 20000711

REACTIONS (4)
  - FATIGUE [None]
  - HYPOAESTHESIA [None]
  - MASS [None]
  - SENSATION OF HEAVINESS [None]
